FAERS Safety Report 5997222-5 (Version None)
Quarter: 2008Q4

REPORT INFORMATION
  Report Type: 
  Country: None (occurrence: None)
  Receive Date: 20081212
  Receipt Date: 20081105
  Transmission Date: 20090506
  Serious: No
  Sender: FDA-Public Use
  Company Number: US-ABBOTT-08P-163-0485875-00

PATIENT
  Sex: Female
  Weight: 46.308 kg

DRUGS (7)
  1. HUMIRA [Suspect]
     Indication: RHEUMATOID ARTHRITIS
     Route: 058
     Dates: start: 20081002
  2. HYDORXYCHLROQUINE [Concomitant]
     Indication: RHEUMATOID ARTHRITIS
  3. METHOTREXATE [Concomitant]
     Indication: RHEUMATOID ARTHRITIS
  4. NEPROXINE SODIUM [Concomitant]
     Indication: RHEUMATOID ARTHRITIS
     Dosage: EITHER DAILY OR BID, THE REPORTER WAS NOT SURE
  5. NEPROXINE SODIUM [Concomitant]
     Indication: PAIN
  6. NEPROXINE SODIUM [Concomitant]
     Indication: INFLAMMATION
  7. FOLIC ACID [Concomitant]
     Indication: RHEUMATOID ARTHRITIS

REACTIONS (4)
  - ACNE [None]
  - PAIN [None]
  - PRURITUS [None]
  - RASH [None]
